FAERS Safety Report 5725391-0 (Version None)
Quarter: 2008Q2

REPORT INFORMATION
  Report Type: 
  Country: None (occurrence: None)
  Receive Date: 20080501
  Receipt Date: 20080419
  Transmission Date: 20081010
  Serious: Yes (Other)
  Sender: FDA-Public Use
  Company Number: US-PFIZER INC-2007104916

PATIENT
  Sex: Female
  Weight: 73.5 kg

DRUGS (1)
  1. CHANTIX [Suspect]
     Indication: SMOKING CESSATION THERAPY
     Route: 048
     Dates: start: 20071122, end: 20071124

REACTIONS (9)
  - ANXIETY [None]
  - BIPOLAR DISORDER [None]
  - DEPRESSION [None]
  - DIARRHOEA [None]
  - DYSGEUSIA [None]
  - GINGIVAL PAIN [None]
  - MOOD SWINGS [None]
  - NAUSEA [None]
  - ORAL DISCOMFORT [None]
